FAERS Safety Report 20277689 (Version 2)
Quarter: 2022Q2

REPORT INFORMATION
  Report Type: Report from Study
  Country: BR (occurrence: BR)
  Receive Date: 20220103
  Receipt Date: 20220623
  Transmission Date: 20220721
  Serious: Yes (Death)
  Sender: FDA-Public Use
  Company Number: BR-JNJFOC-20211239170

PATIENT
  Age: 7 Decade
  Sex: Female
  Weight: 41 kg

DRUGS (2)
  1. STELARA [Suspect]
     Active Substance: USTEKINUMAB
     Indication: Crohn^s disease
     Dates: start: 20190831, end: 2020
  2. STELARA [Suspect]
     Active Substance: USTEKINUMAB
     Route: 058
     Dates: end: 2020

REACTIONS (1)
  - Crohn^s disease [Fatal]

NARRATIVE: CASE EVENT DATE: 20200401
